FAERS Safety Report 14341576 (Version 1)
Quarter: 2018Q1

REPORT INFORMATION
  Report Type: Spontaneous
  Country: FR (occurrence: FR)
  Receive Date: 20180102
  Receipt Date: 20180102
  Transmission Date: 20180509
  Serious: Yes (Other)
  Sender: FDA-Public Use
  Company Number: FR-MERCK KGAA-2038133

PATIENT
  Age: 38 Year
  Sex: Female
  Weight: 64 kg

DRUGS (1)
  1. NOVOTHYROX [Suspect]
     Active Substance: LEVOTHYROXINE SODIUM
     Indication: HYPOTHYROIDISM
     Route: 048
     Dates: start: 20170424, end: 20171003

REACTIONS (6)
  - Headache [Unknown]
  - Blood thyroid stimulating hormone normal [Unknown]
  - Malaise [Unknown]
  - Fatigue [Unknown]
  - Diffuse alopecia [Unknown]
  - Vertigo [Unknown]

NARRATIVE: CASE EVENT DATE: 20170429
